FAERS Safety Report 10648170 (Version 1)
Quarter: 2014Q4

REPORT INFORMATION
  Report Type: Spontaneous
  Country: US (occurrence: None)
  Receive Date: 20141211
  Receipt Date: 20141211
  Transmission Date: 20150529
  Serious: Yes (Disabling)
  Sender: FDA-Public Use
  Company Number: None

PATIENT
  Sex: Female
  Weight: 72.58 kg

DRUGS (1)
  1. FOSAMAX [Suspect]
     Active Substance: ALENDRONATE SODIUM
     Indication: BONE DENSITY ABNORMAL
     Dates: start: 2013, end: 201403

REACTIONS (2)
  - Tooth disorder [None]
  - Jaw disorder [None]

NARRATIVE: CASE EVENT DATE: 2013
